FAERS Safety Report 9142641 (Version 1)
Quarter: 2013Q1

REPORT INFORMATION
  Report Type: Spontaneous
  Country: IT (occurrence: IT)
  Receive Date: 20130306
  Receipt Date: 20130306
  Transmission Date: 20140127
  Serious: Yes (Hospitalization)
  Sender: FDA-Public Use
  Company Number: PHHY2013IT020366

PATIENT
  Age: 37 Year
  Sex: Female

DRUGS (5)
  1. TEGRETOL [Suspect]
     Dosage: 6 DF, UNK
     Route: 048
     Dates: start: 20130225, end: 20130225
  2. OLANZAPINE [Suspect]
     Dosage: 10 DF, UNK
     Route: 048
     Dates: start: 20130225, end: 20130225
  3. MIRTAZAPINE [Suspect]
     Dosage: 15 DF, UNK
     Route: 048
  4. AMISULPRIDE [Concomitant]
     Indication: AFFECTIVE DISORDER
     Dosage: 1 DF, UNK
     Route: 048
  5. RISPERDAL [Concomitant]
     Indication: AFFECTIVE DISORDER
     Dosage: 1 DF, UNK
     Route: 048

REACTIONS (3)
  - Intentional self-injury [Recovered/Resolved]
  - Sopor [Recovered/Resolved]
  - Confusional state [Recovered/Resolved]
